FAERS Safety Report 6738883-2 (Version None)
Quarter: 2010Q2

REPORT INFORMATION
  Report Type: 
  Country: None (occurrence: None)
  Receive Date: 20100521
  Receipt Date: 20100505
  Transmission Date: 20101027
  Serious: Yes (Hospitalization)
  Sender: FDA-Public Use
  Company Number: FKO201000172

PATIENT
  Age: 36 Year
  Sex: Male

DRUGS (3)
  1. CISPLATIN [Suspect]
     Indication: TESTIS CANCER
  2. ETOPOSIDE [Suspect]
     Indication: TESTIS CANCER
  3. BLEOMYCIN (MANUFACTURER UNKNOWN) (BLEOMYCIN) (BLEOMYCIN) [Suspect]
     Indication: TESTIS CANCER

REACTIONS (11)
  - AGITATION [None]
  - APHASIA [None]
  - CAROTID ARTERY THROMBOSIS [None]
  - CONVULSION [None]
  - ENCEPHALITIS [None]
  - FACIAL PALSY [None]
  - HAEMORRHAGIC CEREBRAL INFARCTION [None]
  - HEMIPARESIS [None]
  - METASTASES TO LUNG [None]
  - PULMONARY EMBOLISM [None]
  - PUPILLARY REFLEX IMPAIRED [None]
